FAERS Safety Report 8912315 (Version 1)
Quarter: 2012Q4

REPORT INFORMATION
  Report Type: Report from Study
  Country: JP (occurrence: JP)
  Receive Date: 20121116
  Receipt Date: 20121116
  Transmission Date: 20130627
  Serious: Yes (Other)
  Sender: FDA-Public Use
  Company Number: JP-VERTEX PHARMACEUTICAL INC.-AE-2012-007673

PATIENT
  Age: 67 Year
  Sex: Male

DRUGS (13)
  1. VX-950 (TELAPREVIR) [Suspect]
     Indication: CHRONIC HEPATITIS C
     Dosage: 2250 mg, qd
     Route: 048
     Dates: start: 20120403, end: 20120408
  2. VX-950 (TELAPREVIR) [Suspect]
     Dosage: 1500 mg, qd
     Route: 048
     Dates: start: 20120409, end: 20120430
  3. VX-950 (TELAPREVIR) [Suspect]
     Dosage: 1000 mg, qd
     Route: 048
     Dates: start: 20120501, end: 20120521
  4. VX-950 (TELAPREVIR) [Suspect]
     Dosage: 500 mg, qd
     Route: 048
     Dates: start: 20120522, end: 20120604
  5. VX-950 (TELAPREVIR) [Suspect]
     Dosage: 1000 mg, qd
     Route: 048
     Dates: start: 20120605, end: 20120612
  6. REBETOL [Suspect]
     Indication: CHRONIC HEPATITIS C
     Dosage: 800 mg, qd
     Route: 048
     Dates: start: 20120403, end: 20120408
  7. REBETOL [Suspect]
     Dosage: 400 mg, qd
     Route: 048
     Dates: start: 20120409, end: 20120424
  8. REBETOL [Suspect]
     Dosage: 200 mg, qd
     Route: 048
     Dates: start: 20120425, end: 20120618
  9. REBETOL [Suspect]
     Dosage: 400 mg, qd
     Route: 048
     Dates: start: 20120619, end: 20120917
  10. PEGINTRON                          /01543001/ [Suspect]
     Indication: CHRONIC HEPATITIS C
     Dosage: 1.3 ?g/kg, qw
     Route: 058
     Dates: start: 20120403, end: 20120417
  11. PEGINTRON                          /01543001/ [Suspect]
     Dosage: 1.1 ?g/kg, weekly
     Route: 058
     Dates: start: 20120424, end: 20120911
  12. OLMETEC [Concomitant]
     Dosage: 20 mg, qd
     Route: 048
  13. ADALAT CR [Concomitant]
     Dosage: 20 mg, qd
     Route: 048

REACTIONS (1)
  - Renal impairment [Recovered/Resolved]
